FAERS Safety Report 23820658 (Version 2)
Quarter: 2024Q2

REPORT INFORMATION
  Report Type: Spontaneous
  Country: US (occurrence: US)
  Receive Date: 20240506
  Receipt Date: 20240510
  Transmission Date: 20240716
  Serious: Yes (Other)
  Sender: FDA-Public Use
  Company Number: US-PFIZER INC-PV202400058264

PATIENT
  Age: 39 Year
  Sex: Female

DRUGS (3)
  1. DOXYCYCLINE HYCLATE [Suspect]
     Active Substance: DOXYCYCLINE HYCLATE
     Dosage: UNK
  2. BENLYSTA [Suspect]
     Active Substance: BELIMUMAB
     Dosage: UNK
     Route: 042
  3. BENLYSTA [Suspect]
     Active Substance: BELIMUMAB
     Dosage: UNK
     Route: 058

REACTIONS (17)
  - Brain fog [Not Recovered/Not Resolved]
  - Drug hypersensitivity [Unknown]
  - Depression [Not Recovered/Not Resolved]
  - Epistaxis [Recovered/Resolved]
  - Malaise [Recovered/Resolved]
  - Influenza like illness [Recovered/Resolved]
  - Pain [Not Recovered/Not Resolved]
  - Stomatitis [Not Recovered/Not Resolved]
  - Oropharyngeal pain [Recovered/Resolved]
  - Retching [Not Recovered/Not Resolved]
  - Pyrexia [Recovered/Resolved]
  - Hand-foot-and-mouth disease [Recovered/Resolved]
  - Respiratory tract infection viral [Recovered/Resolved]
  - Fatigue [Recovered/Resolved]
  - Nephrolithiasis [Not Recovered/Not Resolved]
  - Peripheral swelling [Not Recovered/Not Resolved]
  - Systemic lupus erythematosus [Not Recovered/Not Resolved]
